FAERS Safety Report 4812747-3 (Version None)
Quarter: 2005Q4

REPORT INFORMATION
  Report Type: 
  Country: None (occurrence: None)
  Receive Date: 20051028
  Receipt Date: 20041112
  Transmission Date: 20060501
  Serious: No
  Sender: FDA-Public Use
  Company Number: US-GLAXOSMITHKLINE-A0533773A

PATIENT
  Age: 51 Year
  Sex: Female

DRUGS (9)
  1. ADVAIR DISKUS 100/50 [Suspect]
     Indication: ASTHMA
     Dosage: 1PUFF AS REQUIRED
     Route: 055
  2. LOPID [Concomitant]
     Dosage: 600MG UNKNOWN
  3. EFFEXOR [Concomitant]
     Dosage: 75MG UNKNOWN
  4. PREMARIN [Concomitant]
     Dosage: .625MG UNKNOWN
  5. NIACIN [Concomitant]
     Dosage: 1000MG UNKNOWN
  6. VITAMINS [Concomitant]
  7. ACCUPRIL [Concomitant]
     Dosage: 20MG UNKNOWN
  8. METFORMIN HCL [Concomitant]
     Dosage: 500MG UNKNOWN
  9. UNKNOWN MEDICATION [Concomitant]

REACTIONS (2)
  - EYE PAIN [None]
  - MIGRAINE [None]
